FAERS Safety Report 16626515 (Version 1)
Quarter: 2019Q3

REPORT INFORMATION
  Report Type: Report from Study
  Country: GR (occurrence: GR)
  Receive Date: 20190724
  Receipt Date: 20190724
  Transmission Date: 20191004
  Serious: Yes (Hospitalization, Other)
  Sender: FDA-Public Use
  Company Number: GR-JNJFOC-20190715440

PATIENT

DRUGS (1)
  1. REMICADE [Suspect]
     Active Substance: INFLIXIMAB
     Indication: INFLAMMATORY BOWEL DISEASE
     Route: 042

REACTIONS (13)
  - Hypersensitivity [Unknown]
  - Respiratory tract infection [Unknown]
  - Hospitalisation [Unknown]
  - Laboratory test abnormal [Unknown]
  - Musculoskeletal disorder [Unknown]
  - Psychiatric symptom [Unknown]
  - Dizziness [Unknown]
  - Neoplasm malignant [Unknown]
  - Infection [Unknown]
  - Skin reaction [Unknown]
  - Nervous system disorder [Unknown]
  - Fatigue [Unknown]
  - Urinary tract infection [Unknown]
